FAERS Safety Report 19553360 (Version 1)
Quarter: 2021Q3

REPORT INFORMATION
  Report Type: Spontaneous
  Country: IT (occurrence: IT)
  Receive Date: 20210714
  Receipt Date: 20210714
  Transmission Date: 20211014
  Serious: Yes (Other)
  Sender: FDA-Public Use
  Company Number: IT-MYLANLABS-2021M1041896

PATIENT
  Age: 90 Year
  Sex: Female

DRUGS (4)
  1. PREDNISONE. [Suspect]
     Active Substance: PREDNISONE
     Indication: PRODUCT USED FOR UNKNOWN INDICATION
     Dosage: 25 MILLIGRAM, QD
     Route: 048
     Dates: start: 20201019, end: 202101
  2. BUPRENORFINA                       /00444001/ [Concomitant]
     Active Substance: BUPRENORPHINE
     Indication: ABDOMINAL PAIN
     Dosage: 5 MICROGRAM, Q3D
     Route: 062
  3. ENALAPRIL MALEATE W/LERCANIDIPINE HYDROCHLORI [Concomitant]
     Active Substance: ENALAPRIL MALEATE\LERCANIDIPINE HYDROCHLORIDE
     Dosage: ? TABLET PER DAY
  4. BETAISTINA [Concomitant]
     Active Substance: BETAHISTINE HYDROCHLORIDE
     Dosage: 24 MILLIGRAM, QD 2 TABLETS

REACTIONS (3)
  - Hyponatraemia [Unknown]
  - Cachexia [Unknown]
  - Inflammation [Unknown]

NARRATIVE: CASE EVENT DATE: 202101
